FAERS Safety Report 23872547 (Version 2)
Quarter: 2024Q2

REPORT INFORMATION
  Report Type: Other
  Country: FR (occurrence: FR)
  Receive Date: 20240520
  Receipt Date: 20240611
  Transmission Date: 20240715
  Serious: Yes (Other)
  Sender: FDA-Public Use
  Company Number: FR-ROCHE-3561701

PATIENT
  Age: 55 Year
  Sex: Female

DRUGS (1)
  1. RITUXIMAB [Suspect]
     Active Substance: RITUXIMAB
     Indication: Neuromyelitis optica spectrum disorder
     Dosage: 1000 MG ONCE TO TWICE A YEAR
     Route: 042
     Dates: start: 2012

REACTIONS (4)
  - Off label use [Unknown]
  - Dental cyst [Recovered/Resolved with Sequelae]
  - Tooth infection [Recovered/Resolved with Sequelae]
  - Toothache [Recovered/Resolved with Sequelae]
